FAERS Safety Report 20438709 (Version 1)
Quarter: 2022Q1

REPORT INFORMATION
  Report Type: Spontaneous
  Country: US (occurrence: None)
  Receive Date: 20220204
  Receipt Date: 20220204
  Transmission Date: 20220423
  Serious: Yes (Hospitalization, Other)
  Sender: FDA-Public Use
  Company Number: None

PATIENT
  Age: 80 Year
  Sex: Female
  Weight: 65.77 kg

DRUGS (1)
  1. TAXOL [Suspect]
     Active Substance: PACLITAXEL
     Indication: Non-small cell lung cancer
     Dates: start: 20220202

REACTIONS (5)
  - Infusion related reaction [None]
  - Dyspnoea [None]
  - General physical health deterioration [None]
  - Pulse absent [None]
  - Breath sounds absent [None]

NARRATIVE: CASE EVENT DATE: 20220202
